FAERS Safety Report 26157656 (Version 1)
Quarter: 2025Q4

REPORT INFORMATION
  Report Type: Spontaneous
  Country: US (occurrence: None)
  Receive Date: 20251212
  Receipt Date: 20251212
  Transmission Date: 20260118
  Serious: No
  Sender: FDA-CTU
  Company Number: None

PATIENT
  Age: 23 Year
  Sex: Female

DRUGS (1)
  1. INVEGA SUSTENNA [Suspect]
     Active Substance: PALIPERIDONE PALMITATE
     Indication: Schizoaffective disorder bipolar type
     Dosage: OTHER FREQUENCY : ONCE MONTHLY;
     Route: 030

REACTIONS (2)
  - Agitation [None]
  - Product dosage form issue [None]

NARRATIVE: CASE EVENT DATE: 20251210
